FAERS Safety Report 5875639-7 (Version None)
Quarter: 2008Q3

REPORT INFORMATION
  Report Type: 
  Country: None (occurrence: None)
  Receive Date: 20080909
  Receipt Date: 20080902
  Transmission Date: 20090109
  Serious: Yes (Hospitalization)
  Sender: FDA-Public Use
  Company Number: DE-AMGEN-UK305354

PATIENT
  Sex: Female

DRUGS (1)
  1. NEULASTA [Suspect]
     Indication: AGRANULOCYTOSIS
     Route: 058
     Dates: start: 20080704

REACTIONS (2)
  - CEREBRAL HAEMORRHAGE [None]
  - HAEMOLYTIC URAEMIC SYNDROME [None]
